FAERS Safety Report 8538815-0 (Version None)
Quarter: 2012Q3

REPORT INFORMATION
  Report Type: 
  Country: None (occurrence: None)
  Receive Date: 20120726
  Receipt Date: 20120718
  Transmission Date: 20120928
  Serious: Yes (Other)
  Sender: FDA-Public Use
  Company Number: US-SANOFI-AVENTIS-2012SA051332

PATIENT
  Sex: Female

DRUGS (1)
  1. LANTUS [Suspect]
     Route: 058

REACTIONS (6)
  - DEPRESSION [None]
  - ASTHENIA [None]
  - NEOPLASM MALIGNANT [None]
  - VAGINAL HAEMORRHAGE [None]
  - HYPERTENSION [None]
  - HYPERHIDROSIS [None]
